FAERS Safety Report 9455123 (Version 1)
Quarter: 2013Q3

REPORT INFORMATION
  Report Type: Spontaneous
  Country: US (occurrence: US)
  Receive Date: 20130813
  Receipt Date: 20130813
  Transmission Date: 20140515
  Serious: No
  Sender: FDA-Public Use
  Company Number: US-BIOGENIDEC-2013BI075026

PATIENT
  Sex: Female

DRUGS (1)
  1. TYSABRI [Suspect]
     Indication: MULTIPLE SCLEROSIS
     Route: 042
     Dates: start: 20110718, end: 20130226

REACTIONS (3)
  - Adnexa uteri pain [Not Recovered/Not Resolved]
  - Breast discharge [Not Recovered/Not Resolved]
  - Polymenorrhoea [Not Recovered/Not Resolved]
